FAERS Safety Report 5082317-3 (Version None)
Quarter: 2006Q3

REPORT INFORMATION
  Report Type: 
  Country: None (occurrence: None)
  Receive Date: 20060816
  Receipt Date: 20060816
  Transmission Date: 20061208
  Serious: Yes (Death, Other)
  Sender: FDA-Public Use
  Company Number: None

PATIENT

DRUGS (2)
  1. IMURAN [Suspect]
     Dosage: TABLET
  2. 6-MERCAPTOPURINE [Suspect]
     Dosage: TABLET

REACTIONS (5)
  - BONE MARROW FAILURE [None]
  - DRUG INTERACTION [None]
  - DRUG PRESCRIBING ERROR [None]
  - MEDICATION ERROR [None]
  - SEPSIS [None]
